FAERS Safety Report 7624945-4 (Version None)
Quarter: 2011Q3

REPORT INFORMATION
  Report Type: 
  Country: None (occurrence: None)
  Receive Date: 20110720
  Receipt Date: 20110711
  Transmission Date: 20111222
  Serious: Yes (Hospitalization)
  Sender: FDA-Public Use
  Company Number: US-ASTRAZENECA-2011SE18267

PATIENT
  Age: 59 Year
  Sex: Male
  Weight: 88.5 kg

DRUGS (4)
  1. SYMBICORT [Suspect]
     Indication: CHRONIC OBSTRUCTIVE PULMONARY DISEASE
     Dosage: 160/4.5 BID
     Route: 055
  2. SYMBICORT [Suspect]
     Indication: EMPHYSEMA
     Dosage: 160/4.5 BID
     Route: 055
  3. ALBUTEROL [Concomitant]
  4. PROAIR HFA [Concomitant]

REACTIONS (4)
  - ASTHMA [None]
  - MALAISE [None]
  - DYSPNOEA [None]
  - DRUG DOSE OMISSION [None]
